FAERS Safety Report 9205717 (Version 1)
Quarter: 2013Q2

REPORT INFORMATION
  Report Type: Spontaneous
  Country: US (occurrence: US)
  Receive Date: 20130403
  Receipt Date: 20130403
  Transmission Date: 20140414
  Serious: No
  Sender: FDA-Public Use
  Company Number: US-009507513-1304USA000651

PATIENT
  Sex: Male

DRUGS (1)
  1. SAPHRIS [Suspect]
     Dosage: ONLY 1 DOSE
     Route: 060
     Dates: start: 20130306, end: 20130306

REACTIONS (2)
  - Oral pain [Recovered/Resolved]
  - Glossodynia [Recovered/Resolved]
